FAERS Safety Report 12412345 (Version 1)
Quarter: 2016Q2

REPORT INFORMATION
  Report Type: Spontaneous
  Country: NL (occurrence: NL)
  Receive Date: 20160527
  Receipt Date: 20160527
  Transmission Date: 20160815
  Serious: Yes (Hospitalization)
  Sender: FDA-Public Use
  Company Number: NL-009507513-1605NLD011515

PATIENT
  Age: 57 Year
  Sex: Male
  Weight: 89 kg

DRUGS (1)
  1. DIAZOXIDE [Suspect]
     Active Substance: DIAZOXIDE
     Indication: PANCREATIC DISORDER
     Dosage: TWICE DAILY 2 PIECES
     Route: 048
     Dates: start: 20160423, end: 20160511

REACTIONS (4)
  - Tachycardia [Not Recovered/Not Resolved]
  - Chest discomfort [Recovering/Resolving]
  - Feeling abnormal [Recovering/Resolving]
  - Fluid retention [Recovering/Resolving]

NARRATIVE: CASE EVENT DATE: 20160424
